FAERS Safety Report 17003801 (Version 2)
Quarter: 2020Q1

REPORT INFORMATION
  Report Type: Spontaneous
  Country: US (occurrence: US)
  Receive Date: 20191107
  Receipt Date: 20200109
  Transmission Date: 20200409
  Serious: No
  Sender: FDA-Public Use
  Company Number: US-GLENMARK PHARMACEUTICALS-2019GMK043402

PATIENT

DRUGS (1)
  1. ACYCLOVIR OINTMENT USP [Suspect]
     Active Substance: ACYCLOVIR
     Indication: ORAL HERPES
     Dosage: UNK, 6 X A DAY
     Route: 061
     Dates: start: 201812

REACTIONS (6)
  - Suspected counterfeit product [Unknown]
  - Condition aggravated [Recovered/Resolved]
  - Product dispensing error [Unknown]
  - Oral herpes [Recovered/Resolved]
  - Expired product administered [Unknown]
  - Drug ineffective [Unknown]

NARRATIVE: CASE EVENT DATE: 201812
